FAERS Safety Report 6567456-X (Version None)
Quarter: 2010Q1

REPORT INFORMATION
  Report Type: 
  Country: None (occurrence: None)
  Receive Date: 20100202
  Receipt Date: 20100122
  Transmission Date: 20100710
  Serious: Yes (Hospitalization)
  Sender: FDA-Public Use
  Company Number: US-AMGEN-KDC387758

PATIENT
  Sex: Female
  Weight: 68.6 kg

DRUGS (13)
  1. NEULASTA [Suspect]
     Indication: CHEMOTHERAPY
     Dates: start: 20091023, end: 20091231
  2. VINCRISTINE [Suspect]
     Route: 042
     Dates: start: 20091022, end: 20091230
  3. DOXORUBICIN HCL [Suspect]
     Route: 042
     Dates: start: 20091022, end: 20091230
  4. PREDNISONE [Suspect]
     Route: 048
     Dates: start: 20091022, end: 20100103
  5. RITUXAN [Suspect]
     Route: 042
     Dates: start: 20091021, end: 20091230
  6. CYCLOPHOSPHAMIDE [Suspect]
     Route: 042
     Dates: start: 20091022, end: 20091230
  7. LISINOPRIL [Concomitant]
     Route: 048
  8. NORVASC [Concomitant]
     Route: 048
  9. PRAVACHOL [Concomitant]
     Route: 048
  10. PREVACID [Concomitant]
     Route: 048
  11. INSULIN DETEMIR [Concomitant]
     Route: 058
  12. XALATAN [Concomitant]
     Route: 031
  13. THYROID HORMONES [Concomitant]

REACTIONS (1)
  - PNEUMONIA [None]
